FAERS Safety Report 6377822-3 (Version None)
Quarter: 2009Q3

REPORT INFORMATION
  Report Type: 
  Country: None (occurrence: None)
  Receive Date: 20090925
  Receipt Date: 20090917
  Transmission Date: 20100115
  Serious: Yes (Hospitalization)
  Sender: FDA-Public Use
  Company Number: JP-ELI_LILLY_AND_COMPANY-JP200909002772

PATIENT
  Age: 67 Year
  Sex: Male
  Weight: 56 kg

DRUGS (3)
  1. HUMALOG MIX 50/50 [Suspect]
     Dosage: 12 IU, EVERY MORNING
     Route: 058
     Dates: start: 20081221
  2. HUMALOG MIX 50/50 [Suspect]
     Dosage: 8 IU, EVERY DAYTIME
     Route: 058
     Dates: start: 20081221
  3. HUMALOG MIX 50/50 [Suspect]
     Dosage: 16 IU, EVERY EVENING
     Route: 058
     Dates: start: 20081221

REACTIONS (4)
  - GASTRIC FISTULA [None]
  - GASTRITIS ATROPHIC [None]
  - HELICOBACTER GASTRITIS [None]
  - IDIOPATHIC THROMBOCYTOPENIC PURPURA [None]
